FAERS Safety Report 23654070 (Version 2)
Quarter: 2024Q2

REPORT INFORMATION
  Report Type: Spontaneous
  Country: CA (occurrence: CA)
  Receive Date: 20240320
  Receipt Date: 20240409
  Transmission Date: 20240716
  Serious: Yes (Death)
  Sender: FDA-Public Use
  Company Number: CA-002147023-NVSC2024CA054442

PATIENT
  Age: 63 Year
  Sex: Male

DRUGS (14)
  1. THYMOCYTE IMMUNE GLOBULIN NOS [Suspect]
     Active Substance: THYMOCYTE IMMUNE GLOBULIN NOS
     Indication: Graft versus host disease
     Dosage: UNK
     Route: 065
  2. ATOVAQUONE [Suspect]
     Active Substance: ATOVAQUONE
     Indication: Antiviral prophylaxis
     Dosage: UNK
     Route: 065
  3. AZATHIOPRINE [Suspect]
     Active Substance: AZATHIOPRINE
     Indication: Liver transplant
     Dosage: UNK
     Route: 065
  4. BASILIXIMAB [Suspect]
     Active Substance: BASILIXIMAB
     Indication: Liver transplant
     Dosage: UNK
     Route: 065
  5. BASILIXIMAB [Suspect]
     Active Substance: BASILIXIMAB
     Dosage: UNK
     Route: 065
  6. CYCLOSPORINE [Suspect]
     Active Substance: CYCLOSPORINE
     Indication: Liver transplant
     Dosage: UNK
     Route: 065
  7. GANCICLOVIR [Suspect]
     Active Substance: GANCICLOVIR
     Indication: Antiviral prophylaxis
     Dosage: UNK
     Route: 042
  8. HYDROCORTISONE [Suspect]
     Active Substance: HYDROCORTISONE
     Indication: Graft versus host disease
     Dosage: UNK
     Route: 065
  9. HYDROCORTISONE [Suspect]
     Active Substance: HYDROCORTISONE
     Dosage: UNK
     Route: 065
  10. METHOTREXATE [Suspect]
     Active Substance: METHOTREXATE
     Indication: Graft versus host disease
     Dosage: UNK
     Route: 065
  11. METHOTREXATE [Suspect]
     Active Substance: METHOTREXATE
     Dosage: UNK
     Route: 065
  12. SULFAMETHOXAZOLE AND TRIMETHOPRIM [Suspect]
     Active Substance: SULFAMETHOXAZOLE\TRIMETHOPRIM
     Indication: Graft versus host disease
     Dosage: UNK
     Route: 065
  13. TACROLIMUS [Suspect]
     Active Substance: TACROLIMUS
     Indication: Liver transplant
     Dosage: UNK
     Route: 065
  14. VALGANCICLOVIR HYDROCHLORIDE [Suspect]
     Active Substance: VALGANCICLOVIR HYDROCHLORIDE
     Indication: Antiviral prophylaxis
     Dosage: UNK
     Route: 065

REACTIONS (4)
  - Graft versus host disease [Fatal]
  - Sepsis [Fatal]
  - Thrombocytopenia [Fatal]
  - Thrombotic microangiopathy [Fatal]
